FAERS Safety Report 21144826 (Version 1)
Quarter: 2022Q3

REPORT INFORMATION
  Report Type: Spontaneous
  Country: US (occurrence: None)
  Receive Date: 20220728
  Receipt Date: 20220728
  Transmission Date: 20221027
  Serious: No
  Sender: FDA-Public Use
  Company Number: US-ROCHE-3055366

PATIENT
  Sex: Female

DRUGS (6)
  1. PERJETA [Suspect]
     Active Substance: PERTUZUMAB
     Indication: Breast cancer
     Route: 042
     Dates: start: 20211128, end: 20220316
  2. TAXOTERE [Concomitant]
     Active Substance: DOCETAXEL
     Indication: Breast cancer
     Dates: start: 20211128, end: 20220316
  3. CARBOPLATIN [Concomitant]
     Active Substance: CARBOPLATIN
     Indication: Breast cancer
     Dates: start: 20211128, end: 20220316
  4. NEULASTA [Concomitant]
     Active Substance: PEGFILGRASTIM
     Indication: Breast cancer
     Dates: start: 20211128, end: 20220316
  5. BENADRYL [Concomitant]
     Active Substance: DIPHENHYDRAMINE HYDROCHLORIDE
     Indication: Breast cancer
     Dates: start: 20211128, end: 20220316
  6. PALONOSETRON [Concomitant]
     Active Substance: PALONOSETRON
     Indication: Breast cancer
     Dates: start: 20211128, end: 20220316

REACTIONS (7)
  - Nausea [Unknown]
  - Diarrhoea [Unknown]
  - Urinary tract infection [Unknown]
  - Pain [Unknown]
  - Neuropathy peripheral [Unknown]
  - Osteoporosis [Unknown]
  - Sjogren^s syndrome [Unknown]
